FAERS Safety Report 10024938 (Version 4)
Quarter: 2015Q3

REPORT INFORMATION
  Report Type: Spontaneous
  Country: US (occurrence: US)
  Receive Date: 20140320
  Receipt Date: 20150702
  Transmission Date: 20151125
  Serious: Yes (Hospitalization, Other)
  Sender: FDA-Public Use
  Company Number: US-SANOFI-AVENTIS-2012SA028572

PATIENT
  Age: 79 Year
  Sex: Female

DRUGS (11)
  1. XANAX [Concomitant]
     Active Substance: ALPRAZOLAM
     Indication: STRESS
     Dosage: ONCE A DAY AS NEEDED
  2. SIMVASTATIN. [Concomitant]
     Active Substance: SIMVASTATIN
  3. TRENTAL [Concomitant]
     Active Substance: PENTOXIFYLLINE
  4. NASONEX [Concomitant]
     Active Substance: MOMETASONE FUROATE
     Dosage: DOSE: 2 SPRAY EVERY DAY
  5. MECLIZINE [Concomitant]
     Active Substance: MECLIZINE\MECLIZINE HYDROCHLORIDE
     Indication: DIZZINESS
  6. REQUIP [Concomitant]
     Active Substance: ROPINIROLE HYDROCHLORIDE
  7. SOMA [Concomitant]
     Active Substance: CARISOPRODOL
     Dosage: 4 TIMES A DAY AS NEEDED
  8. HYDROCODONE [Concomitant]
     Active Substance: HYDROCODONE
     Dosage: EVERY 4 HOURLY AS NEEDED
  9. PLAVIX [Suspect]
     Active Substance: CLOPIDOGREL BISULFATE
     Indication: VASCULAR GRAFT
     Route: 048
     Dates: start: 20090530, end: 20120615
  10. ARICEPT [Concomitant]
     Active Substance: DONEPEZIL HYDROCHLORIDE
  11. RESTORIL [Concomitant]
     Active Substance: TEMAZEPAM

REACTIONS (2)
  - Multiple injuries [Unknown]
  - Gastrointestinal haemorrhage [Recovered/Resolved]

NARRATIVE: CASE EVENT DATE: 20090910
